FAERS Safety Report 6558664-2 (Version None)
Quarter: 2010Q1

REPORT INFORMATION
  Report Type: 
  Country: None (occurrence: None)
  Receive Date: 20100128
  Receipt Date: 20100128
  Transmission Date: 20100710
  Serious: Yes (Other)
  Sender: FDA-Public Use
  Company Number: None

PATIENT
  Age: 74 Year
  Sex: Male
  Weight: 80.7403 kg

DRUGS (1)
  1. FLOMAX [Suspect]
     Indication: BLADDER DISORDER
     Dosage: 1 CAP 24 HRS ORAL
     Route: 048
     Dates: start: 20091217

REACTIONS (4)
  - APHASIA [None]
  - ASTHENIA [None]
  - MIDDLE INSOMNIA [None]
  - PARALYSIS [None]
